FAERS Safety Report 8351929-3 (Version None)
Quarter: 2012Q2

REPORT INFORMATION
  Report Type: 
  Country: None (occurrence: None)
  Receive Date: 20120511
  Receipt Date: 20120507
  Transmission Date: 20120825
  Serious: No
  Sender: FDA-Public Use
  Company Number: US-PFIZER INC-2012113153

PATIENT
  Sex: Male

DRUGS (2)
  1. INLYTA [Suspect]
     Indication: BRONCHIAL CARCINOMA
     Dosage: 5 MG, 2X/DAY
     Route: 048
     Dates: start: 20120505
  2. INLYTA [Suspect]
     Indication: LUNG NEOPLASM MALIGNANT

REACTIONS (2)
  - CONTUSION [None]
  - DECREASED APPETITE [None]
